FAERS Safety Report 9404454 (Version 1)
Quarter: 2013Q3

REPORT INFORMATION
  Report Type: Spontaneous
  Country: US (occurrence: US)
  Receive Date: 20130717
  Receipt Date: 20130717
  Transmission Date: 20140515
  Serious: No
  Sender: FDA-Public Use
  Company Number: US-PFIZER INC-2013207458

PATIENT
  Age: 83 Year
  Sex: Female

DRUGS (2)
  1. LYRICA [Suspect]
     Indication: NEURALGIA
     Dosage: 200 MG EACH MORNING AND 100 MG EACH NIGHT
  2. LYRICA [Suspect]
     Dosage: 100 MG IN THE MORNING AND 200MG AT NIGHT

REACTIONS (2)
  - Somnolence [Unknown]
  - Pain [Unknown]
